FAERS Safety Report 26177429 (Version 1)
Quarter: 2025Q4

REPORT INFORMATION
  Report Type: Spontaneous
  Country: CN (occurrence: CN)
  Receive Date: 20251219
  Receipt Date: 20251219
  Transmission Date: 20260117
  Serious: Yes (Other)
  Sender: JIANGSU HENGRUI
  Company Number: CN-JIANGSU HENGRUI PHARMACEUTICALS CO., LTD.-H2025244895

PATIENT
  Age: 36 Year

DRUGS (2)
  1. OXALIPLATIN [Suspect]
     Active Substance: OXALIPLATIN
     Indication: Hepatic cancer
     Dosage: 150 MG
  2. RALTITREXED [Concomitant]
     Active Substance: RALTITREXED
     Indication: Hepatic cancer
     Dosage: 4 MG

REACTIONS (1)
  - Hepatic pain [Recovered/Resolved]
